FAERS Safety Report 4728718-1 (Version None)
Quarter: 2005Q3

REPORT INFORMATION
  Report Type: 
  Country: None (occurrence: None)
  Receive Date: 20050729
  Receipt Date: 20050725
  Transmission Date: 20060218
  Serious: Yes (Death, Hospitalization)
  Sender: FDA-Public Use
  Company Number: 2005AP04056

PATIENT
  Age: 63 Year
  Sex: Female

DRUGS (5)
  1. ZESTORETIC [Suspect]
     Indication: HYPERTENSION
     Route: 048
  2. MONO-TILDIEM [Suspect]
     Indication: HYPERTENSION
     Route: 048
  3. AMAREL [Suspect]
     Indication: DIABETES MELLITUS NON-INSULIN-DEPENDENT
     Route: 048
  4. GLUCOPHAGE [Suspect]
     Indication: DIABETES MELLITUS NON-INSULIN-DEPENDENT
     Route: 048
  5. DEROXAT [Concomitant]

REACTIONS (5)
  - COMPLETED SUICIDE [None]
  - INTENTIONAL MISUSE [None]
  - LACTIC ACIDOSIS [None]
  - OVERDOSE [None]
  - SHOCK [None]
